FAERS Safety Report 7053433-1 (Version None)
Quarter: 2010Q4

REPORT INFORMATION
  Report Type: 
  Country: None (occurrence: None)
  Receive Date: 20101014
  Receipt Date: 20101007
  Transmission Date: 20110411
  Serious: Yes (Other)
  Sender: FDA-Public Use
  Company Number: 2010SP054120

PATIENT
  Age: 47 Year
  Sex: Female

DRUGS (3)
  1. MIRTAZAPINE [Suspect]
     Indication: PRODUCT USED FOR UNKNOWN INDICATION
     Dosage: 750 MG; ONCE; PO
     Route: 048
  2. UNKNOWN INDICATION [Suspect]
     Indication: PRODUCT USED FOR UNKNOWN INDICATION
     Dosage: PO
     Route: 048
  3. AMOBAN (ZOPICLONE) [Suspect]
     Dosage: PO
     Route: 048

REACTIONS (2)
  - COMA [None]
  - MULTIPLE DRUG OVERDOSE [None]
